FAERS Safety Report 6637939-2 (Version None)
Quarter: 2010Q1

REPORT INFORMATION
  Report Type: 
  Country: None (occurrence: None)
  Receive Date: 20100317
  Receipt Date: 20100312
  Transmission Date: 20100710
  Serious: Yes (Life-Threatening, Other)
  Sender: FDA-Public Use
  Company Number: PHHY2009BR54575

PATIENT
  Sex: Male

DRUGS (1)
  1. FLOTAC [Suspect]
     Indication: MIGRAINE
     Dosage: 70 MG, ONCE/SINGLE

REACTIONS (5)
  - ANXIETY [None]
  - APPARENT DEATH [None]
  - DYSPNOEA [None]
  - FEELING ABNORMAL [None]
  - MALAISE [None]
